FAERS Safety Report 9505989 (Version 1)
Quarter: 2013Q1

REPORT INFORMATION
  Report Type: Spontaneous
  Country: US (occurrence: None)
  Receive Date: 20130305
  Receipt Date: 20130305
  Transmission Date: 20140127
  Serious: Yes (Hospitalization)
  Sender: FDA-Public Use
  Company Number: 163-21880-11081115

PATIENT
  Age: 60 Year
  Sex: Female

DRUGS (3)
  1. REVLIMID (LENALIDOMIDE) [Suspect]
     Indication: PLASMA CELL MYELOMA
     Route: 048
     Dates: start: 201006, end: 201107
  2. VELCADE [Suspect]
  3. REVLIMID (LENALIDOMIDE) [Suspect]
     Indication: PLASMA CELL MYELOMA
     Route: 048
     Dates: start: 201006, end: 201107

REACTIONS (4)
  - Plasma cell myeloma [None]
  - Neuropathy peripheral [None]
  - Myalgia [None]
  - Paraesthesia [None]
